FAERS Safety Report 9315006 (Version 2)
Quarter: 2013Q2

REPORT INFORMATION
  Report Type: Spontaneous
  Country: DE (occurrence: DE)
  Receive Date: 20130529
  Receipt Date: 20130611
  Transmission Date: 20140414
  Serious: Yes (Hospitalization)
  Sender: FDA-Public Use
  Company Number: DE-GLAXOSMITHKLINE-D0079839A

PATIENT
  Age: 72 Year
  Sex: Male
  Weight: 66 kg

DRUGS (5)
  1. VOTRIENT [Suspect]
     Indication: SARCOMA
     Dosage: 800MG PER DAY
     Route: 048
     Dates: start: 20130415, end: 20130515
  2. KEPPRA [Concomitant]
     Indication: EPILEPSY
     Dosage: 1000MG TWICE PER DAY
     Route: 048
     Dates: start: 201212
  3. PALLADON [Concomitant]
     Indication: PAIN
     Dosage: 4MG PER DAY
     Route: 048
     Dates: start: 201302
  4. CELECOXIB [Concomitant]
     Indication: PAIN
     Dosage: 100MG TWICE PER DAY
     Route: 048
     Dates: start: 201302
  5. BISOPROLOL [Concomitant]
     Indication: TACHYCARDIA
     Dosage: 2.5MG TWICE PER DAY
     Route: 048
     Dates: start: 201212

REACTIONS (2)
  - Haemothorax [Recovering/Resolving]
  - Disease progression [Unknown]
